FAERS Safety Report 5328116-6 (Version None)
Quarter: 2007Q2

REPORT INFORMATION
  Report Type: 
  Country: None (occurrence: None)
  Receive Date: 20070514
  Receipt Date: 20070502
  Transmission Date: 20071010
  Serious: Yes (Other)
  Sender: FDA-Public Use
  Company Number: 2007AL001796

PATIENT
  Age: 35 Year
  Sex: Female

DRUGS (1)
  1. PHENYTOIN [Suspect]
     Indication: EPILEPSY
     Dosage: PO
     Route: 048

REACTIONS (6)
  - CONFUSIONAL STATE [None]
  - DRUG TOXICITY [None]
  - HALLUCINATION [None]
  - HYPOALBUMINAEMIA [None]
  - MYOCLONUS [None]
  - SOMNOLENCE [None]
